FAERS Safety Report 6843022-3 (Version None)
Quarter: 2010Q3

REPORT INFORMATION
  Report Type: 
  Country: None (occurrence: None)
  Receive Date: 20100714
  Receipt Date: 20080103
  Transmission Date: 20110219
  Serious: No
  Sender: FDA-Public Use
  Company Number: US-PFIZER INC-2007066358

PATIENT
  Age: 49 Year
  Sex: Female
  Weight: 65.9 kg

DRUGS (8)
  1. CHANTIX [Suspect]
     Indication: SMOKING CESSATION THERAPY
     Route: 048
     Dates: start: 20070301
  2. CYMBALTA [Concomitant]
  3. PREMARIN [Concomitant]
  4. BACLOFEN [Concomitant]
  5. DETROL LA [Concomitant]
  6. COPAXONE [Concomitant]
  7. VITAMINS [Concomitant]
  8. ALL OTHER THERAPEUTIC PRODUCTS [Concomitant]

REACTIONS (2)
  - DRUG INEFFECTIVE [None]
  - NAUSEA [None]
